FAERS Safety Report 8964306 (Version 2)
Quarter: 2013Q4

REPORT INFORMATION
  Report Type: Spontaneous
  Country: US (occurrence: US)
  Receive Date: 20121214
  Receipt Date: 20131220
  Transmission Date: 20140711
  Serious: No
  Sender: FDA-Public Use
  Company Number: US-GLAXOSMITHKLINE-A0964994A

PATIENT
  Age: 82 Year
  Sex: Male

DRUGS (6)
  1. AVODART [Suspect]
     Indication: MICTURITION DISORDER
     Dosage: 1CAP PER DAY
     Route: 048
     Dates: start: 201107, end: 201110
  2. QUINAPRIL [Concomitant]
  3. METHOTREXATE [Concomitant]
  4. FOLIC ACID [Concomitant]
  5. PREDNISONE [Concomitant]
  6. PRAVASTATIN [Concomitant]

REACTIONS (11)
  - Face oedema [Not Recovered/Not Resolved]
  - Dry skin [Not Recovered/Not Resolved]
  - Dehydration [Not Recovered/Not Resolved]
  - Breast enlargement [Not Recovered/Not Resolved]
  - Pollakiuria [Not Recovered/Not Resolved]
  - Urine output decreased [Not Recovered/Not Resolved]
  - Chromaturia [Not Recovered/Not Resolved]
  - Skin wrinkling [Not Recovered/Not Resolved]
  - Eyelash discolouration [Not Recovered/Not Resolved]
  - Eye swelling [Not Recovered/Not Resolved]
  - Ill-defined disorder [Not Recovered/Not Resolved]
